FAERS Safety Report 5051648-5 (Version None)
Quarter: 2006Q3

REPORT INFORMATION
  Report Type: 
  Country: None (occurrence: None)
  Receive Date: 20060714
  Receipt Date: 20060703
  Transmission Date: 20061208
  Serious: Yes (Other)
  Sender: FDA-Public Use
  Company Number: PHEH2006US08574

PATIENT
  Age: 64 Year
  Sex: Male

DRUGS (5)
  1. ZOMETA [Suspect]
     Indication: MULTIPLE MYELOMA
     Dosage: EVERY 2 MONTHS
  2. ZOMETA [Suspect]
     Dosage: EVERY 3 MONTHS
  3. ZOMETA [Suspect]
     Dosage: EVERY MONTH
     Dates: start: 20020801, end: 20060601
  4. THALIDOMIDE [Concomitant]
     Dosage: REPORTED AS INTERMITTENT
     Dates: start: 20020801, end: 20050801
  5. DEXAMETHASONE TAB [Concomitant]
     Dosage: REPORTED AS INTERMITTENT
     Dates: start: 20020801, end: 20050801

REACTIONS (4)
  - OPEN WOUND [None]
  - OSTEONECROSIS [None]
  - PAIN IN JAW [None]
  - SKIN EXFOLIATION [None]
